FAERS Safety Report 6103111-8 (Version None)
Quarter: 2009Q1

REPORT INFORMATION
  Report Type: 
  Country: None (occurrence: None)
  Receive Date: 20090305
  Receipt Date: 20090226
  Transmission Date: 20090719
  Serious: Yes (Other)
  Sender: FDA-Public Use
  Company Number: US-JNJFOC-20090300099

PATIENT
  Sex: Male
  Weight: 63.5 kg

DRUGS (12)
  1. DURAGESIC-100 [Suspect]
     Dosage: TWO 75MCH/HR PATCHES
     Route: 062
  2. DURAGESIC-100 [Suspect]
     Indication: BACK PAIN
     Route: 062
  3. NEURONTIN [Concomitant]
     Indication: NEURALGIA
     Route: 048
  4. GLUCOTROL [Concomitant]
     Dosage: 1 TABLET IN THE EVENING
     Route: 048
  5. GLUCOTROL [Concomitant]
     Indication: DIABETES MELLITUS
     Dosage: 5 MG 2 TABLETS IN THE MORNING
     Route: 048
  6. GLUCOPHAGE [Concomitant]
     Indication: DIABETES MELLITUS
     Dosage: 1 IN AM AND PM
     Route: 048
  7. ALTACE [Concomitant]
     Indication: HYPERTENSION
     Route: 048
  8. EFFEXOR [Concomitant]
     Dosage: ONE IN PM
     Route: 048
  9. EFFEXOR [Concomitant]
     Indication: DEPRESSION
     Dosage: 75MG 2 TABLETS IN AM
     Route: 048
  10. CLONAZEPAM [Concomitant]
     Dosage: 1 TABLET IN PM
     Route: 048
  11. CLONAZEPAM [Concomitant]
     Indication: DEPRESSION
     Dosage: 1 MG 2 TABLETS IN AM
     Route: 048
  12. OXYCODONE [Concomitant]
     Indication: BREAKTHROUGH PAIN
     Route: 048

REACTIONS (10)
  - DENTAL CARIES [None]
  - DRUG EFFECT DECREASED [None]
  - INAPPROPRIATE SCHEDULE OF DRUG ADMINISTRATION [None]
  - MUSCLE SPASMS [None]
  - OEDEMA PERIPHERAL [None]
  - OSTEOPOROSIS [None]
  - PRODUCT QUALITY ISSUE [None]
  - SOMNOLENCE [None]
  - THERAPY CESSATION [None]
  - WRONG TECHNIQUE IN DRUG USAGE PROCESS [None]
